FAERS Safety Report 5109359-3 (Version None)
Quarter: 2006Q3

REPORT INFORMATION
  Report Type: 
  Country: None (occurrence: None)
  Receive Date: 20060918
  Receipt Date: 20060906
  Transmission Date: 20061208
  Serious: Yes (Other)
  Sender: FDA-Public Use
  Company Number: CHPA2006US08850

PATIENT
  Age: 37 Year
  Sex: Female
  Weight: 61.2 kg

DRUGS (4)
  1. KROGER PLP (NCH)(NICOTINE) TRANS-THERAPEUTIC-SYSTEM [Suspect]
     Indication: SMOKING CESSATION THERAPY
     Dosage: 21 MG, ONCE/SINGLE, TRANSDERMAL
     Route: 062
     Dates: start: 20060831, end: 20060901
  2. AMITRIPTYLINE HCL [Concomitant]
  3. NAPROXEN [Concomitant]
  4. LOPERAMIDE HCL [Concomitant]

REACTIONS (5)
  - CONVULSION [None]
  - DIZZINESS [None]
  - LOSS OF CONSCIOUSNESS [None]
  - MUSCLE TWITCHING [None]
  - TREATMENT NONCOMPLIANCE [None]
